FAERS Safety Report 5744311-6 (Version None)
Quarter: 2008Q2

REPORT INFORMATION
  Report Type: 
  Country: None (occurrence: None)
  Receive Date: 20080516
  Receipt Date: 20080516
  Transmission Date: 20081010
  Serious: Yes (Hospitalization)
  Sender: FDA-Public Use
  Company Number: None

PATIENT
  Age: 79 Year
  Sex: Male

DRUGS (3)
  1. BETADINE [Suspect]
     Indication: SURGERY
  2. COUMADIN [Concomitant]
  3. PERCOCET [Concomitant]

REACTIONS (3)
  - ERYTHEMA [None]
  - SKIN LESION [None]
  - SWELLING [None]
